FAERS Safety Report 11123725 (Version 2)
Quarter: 2015Q2

REPORT INFORMATION
  Report Type: Spontaneous
  Country: US (occurrence: US)
  Receive Date: 20150519
  Receipt Date: 20150626
  Transmission Date: 20150821
  Serious: Yes (Hospitalization, Other)
  Sender: FDA-Public Use
  Company Number: US-AMGEN-USASP2015047345

PATIENT
  Age: 76 Year
  Sex: Female
  Weight: 90.7 kg

DRUGS (9)
  1. OMNARIS [Concomitant]
     Active Substance: CICLESONIDE
     Dosage: 50 MUG/INH, AS NECESSARY
     Dates: end: 20150209
  2. SIMVASTATIN. [Concomitant]
     Active Substance: SIMVASTATIN
     Dosage: 20 MG, DAILY
     Route: 048
  3. DIOVAN HCT [Concomitant]
     Active Substance: HYDROCHLOROTHIAZIDE\VALSARTAN
     Dosage: 320 MG, UNK
     Route: 048
  4. RAMIPRIL. [Concomitant]
     Active Substance: RAMIPRIL
     Dosage: 10 MG, DAILY
     Route: 048
     Dates: end: 20150209
  5. ENBREL [Suspect]
     Active Substance: ETANERCEPT
     Indication: RHEUMATOID ARTHRITIS
     Dosage: 50 MG, QWK
     Route: 058
     Dates: start: 201409
  6. VOLTAREN [Concomitant]
     Active Substance: DICLOFENAC SODIUM
     Dosage: UNK UNK, AS NECESSARY
  7. PREDNISONE. [Concomitant]
     Active Substance: PREDNISONE
     Dosage: 3 MG, QD
     Route: 048
     Dates: end: 20150209
  8. PLAQUENIL [Concomitant]
     Active Substance: HYDROXYCHLOROQUINE SULFATE
     Dosage: 400 MG, QD
     Route: 048
  9. LEVOTHYROXINE SODIUM. [Concomitant]
     Active Substance: LEVOTHYROXINE SODIUM
     Dosage: 0.112 MG, QD
     Route: 048

REACTIONS (19)
  - Cystocele [Recovered/Resolved]
  - Vaginal ulceration [Recovered/Resolved]
  - Oedema peripheral [Recovering/Resolving]
  - Chronic kidney disease [Unknown]
  - Rectocele [Recovered/Resolved]
  - Bladder prolapse [Unknown]
  - Vaginal haemorrhage [Recovered/Resolved]
  - Bladder pain [Recovered/Resolved]
  - Pain in extremity [Not Recovered/Not Resolved]
  - Bursitis [Recovered/Resolved]
  - Urinary tract infection [Unknown]
  - Pneumonia [Recovered/Resolved]
  - Tenderness [Not Recovered/Not Resolved]
  - Tenosynovitis [Recovering/Resolving]
  - Diabetes mellitus [Not Recovered/Not Resolved]
  - Cystitis [Recovered/Resolved]
  - Arthralgia [Not Recovered/Not Resolved]
  - Haematoma [Recovered/Resolved]
  - Muscular weakness [Recovered/Resolved]

NARRATIVE: CASE EVENT DATE: 201504
